FAERS Safety Report 6677703-1 (Version None)
Quarter: 2010Q2

REPORT INFORMATION
  Report Type: 
  Country: None (occurrence: None)
  Receive Date: 20100412
  Receipt Date: 20100111
  Transmission Date: 20101027
  Serious: Yes (Death, Life-Threatening, Hospitalization)
  Sender: FDA-Public Use
  Company Number: GB-TEVA-228975ISR

PATIENT
  Sex: Male

DRUGS (18)
  1. PREDNISOLONE [Suspect]
     Indication: PROSTATE CANCER
     Route: 048
     Dates: start: 20081125, end: 20081215
  2. PREDNISOLONE [Suspect]
     Route: 048
     Dates: start: 20081218, end: 20081223
  3. ABIRATERONE ACETATE OR PLACEBO [Suspect]
     Indication: PROSTATE CANCER
     Route: 048
     Dates: start: 20081125, end: 20081214
  4. ABIRATERONE ACETATE OR PLACEBO [Suspect]
     Route: 048
     Dates: start: 20081219
  5. TAMSULOSIN HCL [Concomitant]
     Indication: PROPHYLAXIS
     Route: 048
     Dates: start: 20081118, end: 20081223
  6. MILK POWDER [Concomitant]
     Indication: MEDICAL DIET
     Route: 048
     Dates: start: 20081101, end: 20081223
  7. CALCIPOTRIOL [Concomitant]
     Indication: PROPHYLAXIS
     Route: 061
     Dates: start: 20030626, end: 20081223
  8. DIPROSALIC OINTMENT [Concomitant]
     Indication: PROPHYLAXIS
     Route: 061
     Dates: start: 20010731, end: 20081223
  9. ATENOLOL [Concomitant]
     Indication: HYPERTENSION
     Route: 048
     Dates: start: 20010209, end: 20081223
  10. BENDROFLUMETHIAZIDE [Concomitant]
     Indication: HYPERTENSION
     Route: 048
     Dates: start: 20011001, end: 20081223
  11. MOXONIDINE [Concomitant]
     Indication: HYPERTENSION
     Route: 048
     Dates: start: 20010524, end: 20081223
  12. FELODIPINE [Concomitant]
     Indication: HYPERTENSION
     Route: 048
     Dates: start: 20010903, end: 20081223
  13. PARACETAMOL [Concomitant]
     Indication: CANCER PAIN
     Route: 048
     Dates: start: 20080101, end: 20081223
  14. GOSERELIN [Concomitant]
     Indication: PROSTATE CANCER
     Route: 058
     Dates: start: 20020104, end: 20081223
  15. POTASSIUM CHLORIDE [Concomitant]
     Indication: HYPOKALAEMIA
     Route: 048
     Dates: start: 20081128, end: 20081201
  16. PHENYTOIN [Concomitant]
     Indication: CONVULSION
     Route: 048
     Dates: start: 20081210, end: 20081210
  17. AMPICILLIN SODIUM/SULBACTAM SODIUM [Concomitant]
     Indication: PROPHYLAXIS
     Route: 048
     Dates: start: 20081210, end: 20081214
  18. GOSERELIN [Concomitant]
     Route: 058
     Dates: start: 20081125, end: 20081223

REACTIONS (3)
  - MYOCARDIAL INFARCTION [None]
  - PNEUMONIA [None]
  - VOMITING [None]
